FAERS Safety Report 7400486-4 (Version None)
Quarter: 2011Q2

REPORT INFORMATION
  Report Type: 
  Country: None (occurrence: None)
  Receive Date: 20110407
  Receipt Date: 20110404
  Transmission Date: 20111010
  Serious: Yes (Other)
  Sender: FDA-Public Use
  Company Number: US-PFIZER INC-2010066406

PATIENT
  Sex: Female
  Weight: 53.51 kg

DRUGS (11)
  1. CHANTIX [Suspect]
     Dosage: UNK
     Route: 048
     Dates: start: 20101101, end: 20101201
  2. OXYCONTIN [Concomitant]
     Dosage: 80 MG, 1X/DAY
  3. RANITIDINE [Concomitant]
     Dosage: 150 MG, UNK
  4. DIAZEPAM [Concomitant]
     Dosage: 10 MG, 4X/DAY
  5. ENALAPRIL [Concomitant]
     Dosage: 5 MG, UNK
  6. LORTAB [Concomitant]
     Indication: PAIN
     Dosage: 10 MG, 4X/DAY
  7. ENALAPRIL [Concomitant]
     Indication: HYPERTENSION
     Dosage: 5 MG, 1X/DAY
  8. CHANTIX [Suspect]
     Indication: SMOKING CESSATION THERAPY
     Dosage: 0.5 MG, 1X/DAY
     Route: 048
     Dates: start: 20090101, end: 20090101
  9. CHANTIX [Suspect]
     Dosage: 0.5 MG, 1X/DAY
     Route: 048
     Dates: start: 20101101, end: 20101101
  10. INDERAL [Concomitant]
     Indication: HYPERTENSION
     Dosage: 160 MG, UNK
  11. NEXIUM [Concomitant]
     Indication: DYSPEPSIA
     Dosage: UNK

REACTIONS (4)
  - BONE DISORDER [None]
  - RASH GENERALISED [None]
  - SWELLING [None]
  - SPINAL FUSION SURGERY [None]
